FAERS Safety Report 18608469 (Version 1)
Quarter: 2020Q4

REPORT INFORMATION
  Report Type: Report from Study
  Country: DE (occurrence: DE)
  Receive Date: 20201212
  Receipt Date: 20201212
  Transmission Date: 20210114
  Serious: Yes (Death)
  Sender: FDA-Public Use
  Company Number: NVSC2020DE331198

PATIENT
  Sex: Female

DRUGS (7)
  1. KISQALI [Suspect]
     Active Substance: RIBOCICLIB
     Dosage: 400 MG, QD (SCHEMA 21 DAYS INTAKE THEN 7 DAYS PAUSE)
     Route: 048
     Dates: start: 20200507, end: 20200624
  2. KISQALI [Suspect]
     Active Substance: RIBOCICLIB
     Dosage: 400 MG, QD (SCHEMA 21 DAYS INTAKE THEN 7 DAYS PAUSE)
     Route: 048
     Dates: start: 20200702, end: 20200722
  3. KISQALI [Suspect]
     Active Substance: RIBOCICLIB
     Dosage: 400 MG, QD (SCHEMA 21 DAYS INTAKE THEN 7 DAYS PAUSE
     Route: 048
     Dates: start: 20191024, end: 20200429
  4. KISQALI [Suspect]
     Active Substance: RIBOCICLIB
     Dosage: 600 MG, QD (SCHEMA 21 DAYS INTAKE THEN 7 DAYS PAUSE
     Route: 048
     Dates: start: 20190926, end: 20191016
  5. FULVESTRANT. [Suspect]
     Active Substance: FULVESTRANT
     Indication: BREAST CANCER METASTATIC
     Dosage: 500 MG, Q4W (EVERY FOUR WEEKS)
     Route: 030
     Dates: start: 20190822, end: 20200722
  6. AFINITOR [Suspect]
     Active Substance: EVEROLIMUS
     Indication: BREAST CANCER METASTATIC
     Dosage: 5 MG, QD
     Route: 048
     Dates: start: 20200724, end: 20200806
  7. KISQALI [Suspect]
     Active Substance: RIBOCICLIB
     Indication: BREAST CANCER METASTATIC
     Dosage: 600 MG, QD (SCHEMA 21 DAYS INTAKE THEN 7 DAYS PAUSE
     Route: 048
     Dates: start: 20190822, end: 20190918

REACTIONS (1)
  - Death [Fatal]

NARRATIVE: CASE EVENT DATE: 20201205
